FAERS Safety Report 12864535 (Version 4)
Quarter: 2018Q2

REPORT INFORMATION
  Report Type: Spontaneous
  Country: US (occurrence: US)
  Receive Date: 20161020
  Receipt Date: 20180426
  Transmission Date: 20180711
  Serious: Yes (Hospitalization, Other)
  Sender: FDA-Public Use
  Company Number: US-BIOGEN-2011BI040829

PATIENT
  Age: 46 Year
  Sex: Female
  Weight: 91 kg

DRUGS (2)
  1. BACLOFEN. [Concomitant]
     Active Substance: BACLOFEN
     Indication: PRODUCT USED FOR UNKNOWN INDICATION
     Route: 065
  2. TYSABRI [Suspect]
     Active Substance: NATALIZUMAB
     Indication: MULTIPLE SCLEROSIS
     Dosage: INFUSED OVER 1 HOUR
     Route: 042
     Dates: start: 20110804, end: 20110804

REACTIONS (9)
  - Diplopia [Unknown]
  - Mobility decreased [Unknown]
  - Seizure [Recovered/Resolved]
  - Memory impairment [Unknown]
  - Thermal burn [Unknown]
  - Hysterectomy [Recovered/Resolved]
  - Loss of consciousness [Recovered/Resolved]
  - Cognitive disorder [Not Recovered/Not Resolved]
  - Immune system disorder [Unknown]

NARRATIVE: CASE EVENT DATE: 2011
